FAERS Safety Report 8293135-7 (Version None)
Quarter: 2012Q2

REPORT INFORMATION
  Report Type: 
  Country: None (occurrence: None)
  Receive Date: 20120417
  Receipt Date: 20120124
  Transmission Date: 20120825
  Serious: No
  Sender: FDA-Public Use
  Company Number: US-ASTRAZENECA-2012SE04913

PATIENT
  Sex: Female

DRUGS (2)
  1. PREDNISONE [Suspect]
     Route: 065
  2. NEXIUM [Suspect]
     Indication: PROPHYLAXIS AGAINST GASTROINTESTINAL ULCER
     Route: 048

REACTIONS (2)
  - FIBROMYALGIA [None]
  - OFF LABEL USE [None]
